FAERS Safety Report 15647281 (Version 1)
Quarter: 2018Q4

REPORT INFORMATION
  Report Type: Report from Study
  Country: US (occurrence: US)
  Receive Date: 20181122
  Receipt Date: 20181122
  Transmission Date: 20190205
  Serious: No
  Sender: FDA-Public Use
  Company Number: US-IPSEN BIOPHARMACEUTICALS, INC.-2018-11614

PATIENT
  Sex: Female

DRUGS (1)
  1. SOMATULINE DEPOT [Suspect]
     Active Substance: LANREOTIDE ACETATE
     Indication: ACROMEGALY
     Dosage: 90 MG, UPPER OUTER BUTTOCKS, ROTATE BETWEEN SIDES.
     Route: 058
     Dates: start: 20141114, end: 20180921

REACTIONS (2)
  - Intentional product misuse [Unknown]
  - Arthralgia [Unknown]
